FAERS Safety Report 23629449 (Version 1)
Quarter: 2024Q1

REPORT INFORMATION
  Report Type: Report from Study
  Country: US (occurrence: US)
  Receive Date: 20240313
  Receipt Date: 20240313
  Transmission Date: 20240409
  Serious: Yes (Other)
  Sender: FDA-Public Use
  Company Number: US-ABBVIE-5309805

PATIENT
  Sex: Female
  Weight: 86.182 kg

DRUGS (6)
  1. SKYRIZI [Suspect]
     Active Substance: RISANKIZUMAB-RZAA
     Indication: Psoriasis
     Dosage: FORM STRENGTH: 150 MG
     Route: 058
  2. SKYRIZI [Suspect]
     Active Substance: RISANKIZUMAB-RZAA
     Dosage: FORM STRENGTH: 150 MG?STOP: 2022
     Route: 058
     Dates: start: 202210
  3. SKYRIZI [Suspect]
     Active Substance: RISANKIZUMAB-RZAA
     Dosage: FORM STRENGTH: 150 MG
     Route: 058
     Dates: start: 202211
  4. VITAMINS [Concomitant]
     Active Substance: VITAMINS
     Indication: Pregnancy
     Dates: start: 20230615
  5. ZOLOFT [Concomitant]
     Active Substance: SERTRALINE HYDROCHLORIDE
     Indication: Depression
     Dosage: FORM STRENGTH: 150 MILLIGRAM
     Route: 048
     Dates: start: 20230101
  6. BUSPAR [Concomitant]
     Active Substance: BUSPIRONE HYDROCHLORIDE
     Indication: Depression
     Dosage: FORM STRENGTH: 7.5 MILLIGRAM, START DATE-01 JAN 2020
     Route: 048
     Dates: start: 20200101

REACTIONS (4)
  - Gestational diabetes [Recovered/Resolved]
  - Psoriasis [Unknown]
  - Maternal exposure during pregnancy [Unknown]
  - Live birth [Unknown]

NARRATIVE: CASE EVENT DATE: 20231018
